FAERS Safety Report 8005530-1 (Version None)
Quarter: 2011Q4

REPORT INFORMATION
  Report Type: 
  Country: None (occurrence: None)
  Receive Date: 20111223
  Receipt Date: 20111219
  Transmission Date: 20120403
  Serious: Yes (Death, Life-Threatening, Hospitalization)
  Sender: FDA-Public Use
  Company Number: JP-PFIZER INC-2011295789

PATIENT
  Age: 59 Year
  Sex: Male
  Weight: 66 kg

DRUGS (25)
  1. OXYCODONE HYDROCHLORIDE [Concomitant]
     Indication: RENAL CELL CARCINOMA
     Dosage: UNK
     Route: 048
  2. AZUNOL [Concomitant]
     Indication: DECUBITUS ULCER
     Dosage: UNK
     Route: 062
     Dates: start: 20110920, end: 20111124
  3. ZOMETA [Concomitant]
     Dosage: 4 MG, 1X/DAY
     Route: 042
     Dates: start: 20110927, end: 20110927
  4. ZOMETA [Concomitant]
     Dosage: 4 MG, 1X/DAY
     Route: 042
     Dates: start: 20111108, end: 20111108
  5. MAGNESIUM OXIDE [Concomitant]
     Indication: CONSTIPATION
     Dosage: 330 MG, 3X/DAY
     Route: 048
     Dates: end: 20111020
  6. ZOMETA [Concomitant]
     Indication: RENAL CELL CARCINOMA
     Dosage: 4 MG, 1X/DAY
     Route: 042
     Dates: start: 20110812, end: 20110812
  7. PRIMPERAN TAB [Concomitant]
     Indication: NAUSEA
     Dosage: 5 MG, 3X/DAY
     Route: 048
     Dates: end: 20111020
  8. LOXONIN [Concomitant]
     Indication: RENAL CELL CARCINOMA
  9. LANSOPRAZOLE [Concomitant]
     Indication: PROPHYLAXIS AGAINST GASTROINTESTINAL ULCER
     Dosage: 15 MG, 1X/DAY
     Route: 048
     Dates: end: 20111020
  10. POLARAMINE [Concomitant]
     Indication: PROPHYLAXIS
     Dosage: 5 MG, WEEKLY
     Route: 042
     Dates: start: 20110823, end: 20111025
  11. ZOMETA [Concomitant]
     Indication: HYPERKALAEMIA
     Dosage: 4 MG, 1X/DAY
     Route: 042
     Dates: start: 20110830, end: 20110830
  12. FENTANYL CITRATE [Concomitant]
     Indication: RENAL CELL CARCINOMA
     Dosage: 2 MG, 1X/DAY
     Route: 062
     Dates: start: 20111022, end: 20111109
  13. CHLOMY-P [Concomitant]
     Indication: DECUBITUS ULCER
     Dosage: UNK
     Dates: start: 20110920, end: 20111124
  14. PURSENNID [Concomitant]
     Indication: CONSTIPATION
     Dosage: 24 MG, 1X/DAY
     Route: 048
     Dates: start: 20111001, end: 20111020
  15. DECADRON [Concomitant]
     Indication: METASTASES TO CENTRAL NERVOUS SYSTEM
     Dosage: 0.5 MG, 1X/DAY
     Route: 048
     Dates: end: 20111020
  16. FENTANYL CITRATE [Concomitant]
     Indication: CANCER PAIN
     Dosage: 1 MG, 1X/DAY
     Route: 062
     Dates: end: 20111021
  17. VOLTAREN [Concomitant]
     Indication: RENAL CELL CARCINOMA
     Dosage: 25 UNK, UNK
  18. POSTERISAN FORTE [Concomitant]
     Indication: HAEMORRHOIDS
     Dosage: 2 UNK, UNK
     Dates: start: 20110922, end: 20111110
  19. ZOMETA [Concomitant]
     Dosage: 4 MG, 1X/DAY
     Route: 042
     Dates: start: 20111012, end: 20111012
  20. LOXONIN [Concomitant]
     Indication: CANCER PAIN
     Dosage: 60 MG, 3X/DAY
     Route: 048
     Dates: end: 20111020
  21. OXYCODONE HYDROCHLORIDE [Concomitant]
     Indication: CANCER PAIN
     Dosage: UNK
     Route: 048
     Dates: end: 20111109
  22. VOLTAREN [Concomitant]
     Indication: CANCER PAIN
  23. TEMSIROLIMUS [Suspect]
     Indication: RENAL CELL CARCINOMA
     Dosage: 25 MG, CYCLIC, WEEKLY
     Route: 042
     Dates: start: 20110823, end: 20111025
  24. DECADRON [Concomitant]
     Indication: PROPHYLAXIS
     Dosage: 8 MG, WEEKLY
     Route: 042
     Dates: start: 20110823, end: 20111025
  25. DEPAS [Concomitant]
     Indication: MENTAL DISORDER
     Dosage: 0.5 MG, 3X/DAY
     Route: 048
     Dates: end: 20111020

REACTIONS (6)
  - HYPONATRAEMIA [None]
  - PHARYNGITIS [None]
  - DYSPHAGIA [None]
  - RENAL CELL CARCINOMA [None]
  - INAPPROPRIATE ANTIDIURETIC HORMONE SECRETION [None]
  - DISEASE PROGRESSION [None]
